FAERS Safety Report 14147101 (Version 1)
Quarter: 2017Q4

REPORT INFORMATION
  Report Type: Spontaneous
  Country: US (occurrence: US)
  Receive Date: 20171031
  Receipt Date: 20171031
  Transmission Date: 20180321
  Serious: No
  Sender: FDA-Public Use
  Company Number: US-ROCHE-1993142

PATIENT
  Age: 75 Year
  Sex: Female

DRUGS (3)
  1. ESBRIET [Suspect]
     Active Substance: PIRFENIDONE
     Dosage: TAKE 1 TAB BY MOUTH THREE TIMES DAILY FOR 1 WEEK, 2 TABS THRICE A DAY X1WEEK, 3 TABS THREE TIMES DAI
     Route: 048
  2. ESBRIET [Suspect]
     Active Substance: PIRFENIDONE
     Indication: IDIOPATHIC PULMONARY FIBROSIS
     Dosage: TAKE 1 TAB BY MOUTH THREE TIMES DAILY FOR 1 WEEK, 2 TABS THRICE A DAY X1WEEK, 3 TABS THREE TIMES DAI
     Route: 048
     Dates: start: 20170908
  3. ESBRIET [Suspect]
     Active Substance: PIRFENIDONE
     Dosage: TAKE 1 TAB BY MOUTH THREE TIMES DAILY FOR 1 WEEK, 2 TABS THRICE A DAY X1WEEK, 3 TABS THREE TIMES DAI
     Route: 048

REACTIONS (1)
  - Nausea [Unknown]

NARRATIVE: CASE EVENT DATE: 20170908
